FAERS Safety Report 9337892 (Version 2)
Quarter: 2013Q2

REPORT INFORMATION
  Report Type: Spontaneous
  Country: BE (occurrence: BE)
  Receive Date: 20130608
  Receipt Date: 20130617
  Transmission Date: 20140414
  Serious: Yes (Hospitalization, Disabling)
  Sender: FDA-Public Use
  Company Number: BE-B.I. PHARMACEUTICALS,INC./RIDGEFIELD-2013-BL-00281BL

PATIENT
  Age: 66 Year
  Sex: Male
  Weight: 92 kg

DRUGS (7)
  1. PRADAXA [Suspect]
     Indication: ATRIAL FIBRILLATION
     Dosage: 300 MG
     Route: 048
     Dates: end: 20130515
  2. CRESTOR [Concomitant]
     Route: 048
  3. SELOZOK [Concomitant]
     Route: 048
  4. CARDIOASPIRINE [Concomitant]
     Route: 048
  5. ZESTORETIC [Concomitant]
     Dosage: 20-12.5
     Route: 048
  6. SIPRALEXA [Concomitant]
     Route: 048
  7. ZYPREXA [Concomitant]
     Route: 048

REACTIONS (4)
  - Ischaemic stroke [Not Recovered/Not Resolved]
  - Embolism arterial [Not Recovered/Not Resolved]
  - Hemiplegia [Not Recovered/Not Resolved]
  - Somnolence [Not Recovered/Not Resolved]
